FAERS Safety Report 6865484-8 (Version None)
Quarter: 2010Q3

REPORT INFORMATION
  Report Type: 
  Country: None (occurrence: None)
  Receive Date: 20100721
  Receipt Date: 20080910
  Transmission Date: 20110219
  Serious: No
  Sender: FDA-Public Use
  Company Number: US-PFIZER INC-2008036193

PATIENT
  Sex: Male
  Weight: 100 kg

DRUGS (2)
  1. CHANTIX [Suspect]
     Indication: SMOKING CESSATION THERAPY
     Route: 048
     Dates: start: 20080225, end: 20080420
  2. VITAMINS [Concomitant]

REACTIONS (4)
  - ANHIDROSIS [None]
  - DEHYDRATION [None]
  - DIZZINESS [None]
  - FEELING ABNORMAL [None]
